FAERS Safety Report 15323831 (Version 4)
Quarter: 2018Q4

REPORT INFORMATION
  Report Type: Spontaneous
  Country: CA (occurrence: CA)
  Receive Date: 20180828
  Receipt Date: 20181210
  Transmission Date: 20190204
  Serious: Yes (Other)
  Sender: FDA-Public Use
  Company Number: CA-CELLTRION INC.-2018CA021701

PATIENT

DRUGS (7)
  1. INFLECTRA [Suspect]
     Active Substance: INFLIXIMAB-DYYB
     Dosage: 400 MG, CYCLIC Q 0,2,6 WEEKS, THEN EVRY 8 WEEKS
     Route: 042
     Dates: start: 20180814
  2. DEXILANT [Concomitant]
     Active Substance: DEXLANSOPRAZOLE
     Dosage: UNK
  3. INFLECTRA [Suspect]
     Active Substance: INFLIXIMAB-DYYB
     Dosage: 400 MG, CYCLIC Q 0,2,6 WEEKS, THEN EVRY 8 WEEKS
     Route: 042
     Dates: start: 20180814
  4. INFLECTRA [Suspect]
     Active Substance: INFLIXIMAB-DYYB
     Dosage: 400 MG, CYCLIC Q 0,2,6 WEEKS, THEN EVRY 8 WEEKS
     Route: 042
     Dates: start: 20180911
  5. INFLECTRA [Suspect]
     Active Substance: INFLIXIMAB-DYYB
     Indication: ANKYLOSING SPONDYLITIS
     Dosage: 400 MG, CYCLIC Q 0,2,6 WEEKS, THEN EVRY 8 WEEKS
     Route: 042
     Dates: start: 20180731
  6. PROXICAM [Concomitant]
     Active Substance: PIROXICAM
     Dosage: UNK
  7. INFLECTRA [Suspect]
     Active Substance: INFLIXIMAB-DYYB
     Dosage: 400 MG, CYCLIC Q 0,2,6 WEEKS, THEN EVRY 8 WEEKS
     Route: 042
     Dates: start: 20181106

REACTIONS (12)
  - Musculoskeletal pain [Unknown]
  - Arthralgia [Unknown]
  - Musculoskeletal stiffness [Unknown]
  - Condition aggravated [Unknown]
  - Drug ineffective [Unknown]
  - Weight decreased [Unknown]
  - Paraesthesia [Unknown]
  - Decreased appetite [Unknown]
  - Fatigue [Unknown]
  - Product prescribing error [Unknown]
  - Vomiting [Unknown]
  - Abdominal pain upper [Unknown]
